FAERS Safety Report 5610445-X (Version None)
Quarter: 2008Q1

REPORT INFORMATION
  Report Type: 
  Country: None (occurrence: None)
  Receive Date: 20080128
  Receipt Date: 20080115
  Transmission Date: 20080703
  Serious: Yes (Death, Life-Threatening, Hospitalization)
  Sender: FDA-Public Use
  Company Number: US021127

PATIENT
  Age: 44 Year
  Sex: Female
  Weight: 74.8435 kg

DRUGS (9)
  1. FENTORA [Suspect]
     Indication: MIGRAINE
     Dosage: QD BUCCAL
     Route: 002
     Dates: start: 20070401
  2. BUPROPION HCL [Concomitant]
  3. LIDOCAINE [Concomitant]
  4. DULOXETINE [Concomitant]
  5. CITALOPRAM HYDROBROMIDE [Concomitant]
  6. GABAPENTIN [Concomitant]
  7. PHENOBARBITAL TAB [Concomitant]
  8. DIAZEPAM [Concomitant]
  9. ATROPINE [Concomitant]

REACTIONS (12)
  - ANOXIC ENCEPHALOPATHY [None]
  - CARDIOMEGALY [None]
  - CYANOSIS [None]
  - DISSEMINATED INTRAVASCULAR COAGULATION [None]
  - DRUG LEVEL INCREASED [None]
  - HEPATOTOXICITY [None]
  - INTESTINAL ISCHAEMIA [None]
  - LOSS OF CONSCIOUSNESS [None]
  - MULTI-ORGAN FAILURE [None]
  - MYOCARDIAL FIBROSIS [None]
  - OVERDOSE [None]
  - RENAL FAILURE ACUTE [None]
